FAERS Safety Report 22340829 (Version 1)
Quarter: 2023Q2

REPORT INFORMATION
  Report Type: Spontaneous
  Country: DE (occurrence: DE)
  Receive Date: 20230518
  Receipt Date: 20230518
  Transmission Date: 20230721
  Serious: Yes (Death, Other)
  Sender: FDA-Public Use
  Company Number: None

PATIENT
  Age: 22 Year
  Sex: Male
  Weight: 65 kg

DRUGS (14)
  1. FLUNITRAZEPAM [Interacting]
     Active Substance: FLUNITRAZEPAM
     Indication: Product used for unknown indication
     Dosage: UNSPECIFIED
     Dates: start: 19950623
  2. OXAZEPAM [Interacting]
     Active Substance: OXAZEPAM
     Indication: Product used for unknown indication
     Dates: start: 19950518, end: 19950519
  3. ZOPICLONE [Interacting]
     Active Substance: ZOPICLONE
     Indication: Sleep disorder
     Dosage: UNSPECIFIED
     Dates: start: 19950705
  4. MIDAZOLAM [Interacting]
     Active Substance: MIDAZOLAM
     Indication: Product used for unknown indication
     Route: 065
  5. NORCLOZAPINE [Suspect]
     Active Substance: NORCLOZAPINE
     Indication: Product used for unknown indication
     Route: 065
  6. CLOZAPINE [Interacting]
     Active Substance: CLOZAPINE
     Indication: Psychotic disorder
     Dates: start: 19950519
  7. CLOZAPINE [Interacting]
     Active Substance: CLOZAPINE
     Dates: end: 19950806
  8. NORDAZEPAM [Interacting]
     Active Substance: NORDAZEPAM
     Indication: Product used for unknown indication
     Route: 065
  9. CLOPENTHIXOL HYDROCHLORIDE [Interacting]
     Active Substance: CLOPENTHIXOL HYDROCHLORIDE
     Indication: Product used for unknown indication
     Dosage: UNSPECIFIED
     Dates: start: 19960726
  10. FLUPHENAZINE DECANOATE [Suspect]
     Active Substance: FLUPHENAZINE DECANOATE
     Indication: Product used for unknown indication
     Dosage: UNSPECIFIED
     Dates: start: 19950730
  11. ISOPROMETHAZINE HYDROCHLORIDE [Suspect]
     Active Substance: ISOPROMETHAZINE HYDROCHLORIDE
     Indication: Product used for unknown indication
     Dates: start: 19950623
  12. TAVOR (LORAZEPAM) [Interacting]
     Active Substance: LORAZEPAM
     Indication: Product used for unknown indication
     Dosage: UNSPECIFIED
     Dates: start: 19950623
  13. VALIUM [Interacting]
     Active Substance: DIAZEPAM
     Indication: Product used for unknown indication
     Dates: start: 199508
  14. HALDOL [Interacting]
     Active Substance: HALOPERIDOL
     Indication: Product used for unknown indication
     Route: 065

REACTIONS (6)
  - Pulmonary oedema [Fatal]
  - Respiratory depression [Fatal]
  - Sudden death [Fatal]
  - Cardiac failure [Fatal]
  - Suicidal ideation [Unknown]
  - Drug interaction [Unknown]

NARRATIVE: CASE EVENT DATE: 19950816
